FAERS Safety Report 16961157 (Version 2)
Quarter: 2020Q1

REPORT INFORMATION
  Report Type: Spontaneous
  Country: US (occurrence: US)
  Receive Date: 20191025
  Receipt Date: 20200109
  Transmission Date: 20200409
  Serious: No
  Sender: FDA-Public Use
  Company Number: US-GLENMARK PHARMACEUTICALS-2019GMK043003

PATIENT

DRUGS (4)
  1. FINASTERIDE. [Concomitant]
     Active Substance: FINASTERIDE
     Indication: LICHEN PLANOPILARIS
     Dosage: 5 MG, (1 QUARTER OF THE PILL AT BEDTIME)
     Route: 065
     Dates: start: 20190814
  2. FOSAMAX [Concomitant]
     Active Substance: ALENDRONATE SODIUM
     Indication: OSTEOPOROSIS
     Dosage: UNK, QW (ONCE A WEEK)
     Route: 065
  3. LEVOTHYROXINE. [Concomitant]
     Active Substance: LEVOTHYROXINE
     Indication: THYROID DISORDER
     Dosage: UNK, AM (ONCE A DAY IN MORNING)
     Route: 065
  4. TACROZ OINTMENT 0.1% [Suspect]
     Active Substance: TACROLIMUS
     Indication: LICHEN PLANOPILARIS
     Dosage: UNK UNK, OD (AT BEDTIME)
     Route: 061
     Dates: start: 20190814

REACTIONS (4)
  - Hair texture abnormal [Recovered/Resolved]
  - Product use in unapproved indication [Unknown]
  - Application site pruritus [Recovered/Resolved]
  - Product solubility abnormal [Unknown]

NARRATIVE: CASE EVENT DATE: 20190814
